FAERS Safety Report 23693232 (Version 2)
Quarter: 2024Q2

REPORT INFORMATION
  Report Type: Report from Study
  Country: US (occurrence: US)
  Receive Date: 20240401
  Receipt Date: 20240412
  Transmission Date: 20240716
  Serious: Yes (Hospitalization, Other)
  Sender: FDA-Public Use
  Company Number: US-ABBVIE-5694717

PATIENT
  Age: 77 Year
  Sex: Female
  Weight: 101.6 kg

DRUGS (11)
  1. HUMIRA [Suspect]
     Active Substance: ADALIMUMAB
     Indication: Rheumatoid arthritis
     Dosage: FORM STRENGTH: 40 MILLIGRAM
     Route: 058
     Dates: start: 20230317, end: 20240223
  2. HUMIRA [Suspect]
     Active Substance: ADALIMUMAB
     Dosage: FORM STRENGTH: 40 MILLIGRAM
     Route: 058
     Dates: start: 20240319
  3. METOPROLOL [Concomitant]
     Active Substance: METOPROLOL
     Indication: Hypertension
  4. GABAPENTIN [Concomitant]
     Active Substance: GABAPENTIN
     Indication: Pain
  5. ASPIRIN [Concomitant]
     Active Substance: ASPIRIN
     Indication: Coronary artery disease
  6. METHOTREXATE [Concomitant]
     Active Substance: METHOTREXATE
     Indication: Rheumatoid arthritis
  7. LASIX [Concomitant]
     Active Substance: FUROSEMIDE
     Indication: Coronary artery disease
  8. TYLENOL [Concomitant]
     Active Substance: ACETAMINOPHEN
     Indication: Pain
  9. FOLIC ACID [Concomitant]
     Active Substance: FOLIC ACID
     Indication: Rheumatoid arthritis
  10. ATORVASTATIN [Concomitant]
     Active Substance: ATORVASTATIN
     Indication: Blood cholesterol
  11. POTASSIUM CHLORIDE [Concomitant]
     Active Substance: POTASSIUM CHLORIDE
     Indication: Coronary artery disease

REACTIONS (11)
  - Biliary colic [Unknown]
  - Oropharyngeal pain [Not Recovered/Not Resolved]
  - Muscular weakness [Recovering/Resolving]
  - Glycosylated haemoglobin increased [Recovered/Resolved]
  - Glucose tolerance impaired [Recovering/Resolving]
  - Nausea [Recovering/Resolving]
  - Dysphonia [Unknown]
  - Paranasal sinus hypersecretion [Not Recovered/Not Resolved]
  - Blood glucose increased [Recovered/Resolved]
  - Gallbladder disorder [Unknown]
  - Hepatic enzyme increased [Unknown]

NARRATIVE: CASE EVENT DATE: 20240201
